FAERS Safety Report 7755820-2 (Version None)
Quarter: 2011Q3

REPORT INFORMATION
  Report Type: 
  Country: None (occurrence: None)
  Receive Date: 20110915
  Receipt Date: 20110915
  Transmission Date: 20111222
  Serious: Yes (Hospitalization)
  Sender: FDA-Public Use
  Company Number: None

PATIENT
  Sex: Male
  Weight: 109 kg

DRUGS (3)
  1. PEG-L-ASPARAGINASE (K-H) [Suspect]
     Dosage: 5725 IU
  2. VINCRISTINE SULFATE [Suspect]
     Dosage: 4 MG
  3. METHOTREXATE [Suspect]
     Dosage: 574 MG

REACTIONS (1)
  - BLOOD TRIGLYCERIDES INCREASED [None]
